FAERS Safety Report 19685413 (Version 2)
Quarter: 2021Q4

REPORT INFORMATION
  Report Type: Spontaneous
  Country: CA (occurrence: CA)
  Receive Date: 20210811
  Receipt Date: 20211228
  Transmission Date: 20220303
  Serious: Yes (Other)
  Sender: FDA-Public Use
  Company Number: CA-PFIZER INC-202100985567

PATIENT
  Age: 49 Year
  Sex: Female

DRUGS (2)
  1. ATORVASTATIN CALCIUM [Interacting]
     Active Substance: ATORVASTATIN CALCIUM
     Dosage: UNK
  2. AMIODARONE HYDROCHLORIDE [Interacting]
     Active Substance: AMIODARONE HYDROCHLORIDE
     Dosage: UNK
     Route: 048

REACTIONS (4)
  - Alanine aminotransferase increased [Unknown]
  - Aspartate aminotransferase increased [Unknown]
  - Drug interaction [Unknown]
  - Transaminases increased [Unknown]
